FAERS Safety Report 17540271 (Version 1)
Quarter: 2020Q1

REPORT INFORMATION
  Report Type: Spontaneous
  Country: US (occurrence: US)
  Receive Date: 20200313
  Receipt Date: 20200313
  Transmission Date: 20200409
  Serious: Yes (Other)
  Sender: FDA-Public Use
  Company Number: US-ASTELLAS-2020US007169

PATIENT
  Sex: Male

DRUGS (2)
  1. MYRBETRIQ [Suspect]
     Active Substance: MIRABEGRON
     Indication: PRODUCT USED FOR UNKNOWN INDICATION
     Route: 048
  2. MYRBETRIQ [Suspect]
     Active Substance: MIRABEGRON
     Route: 048

REACTIONS (7)
  - Micturition urgency [Unknown]
  - Sleep disorder [Unknown]
  - Hip fracture [Unknown]
  - Nocturia [Unknown]
  - Therapeutic product effect incomplete [Unknown]
  - Urinary retention [Unknown]
  - Insurance issue [Unknown]
